FAERS Safety Report 22126076 (Version 1)
Quarter: 2023Q1

REPORT INFORMATION
  Report Type: Spontaneous
  Country: US (occurrence: US)
  Receive Date: 20230322
  Receipt Date: 20230322
  Transmission Date: 20230418
  Serious: No
  Sender: FDA-Public Use
  Company Number: US-ALLERGAN-2217586US

PATIENT
  Age: 78 Year
  Sex: Female
  Weight: 50 kg

DRUGS (20)
  1. LATISSE [Suspect]
     Active Substance: BIMATOPROST
     Indication: Growth of eyelashes
     Dosage: 1 DF, QD
     Dates: start: 20220521, end: 20220523
  2. ESTRACE [Concomitant]
     Active Substance: ESTRADIOL
     Indication: Supplementation therapy
  3. FIORINAL [Concomitant]
     Active Substance: ASPIRIN\BUTALBITAL\CAFFEINE
     Indication: Migraine
  4. ASPIRIN [Concomitant]
     Active Substance: ASPIRIN
     Indication: Headache
  5. LIPITOR [Concomitant]
     Active Substance: ATORVASTATIN CALCIUM
     Indication: Blood cholesterol increased
  6. BIOTIN [Concomitant]
     Active Substance: BIOTIN
     Indication: Supplementation therapy
  7. MINERALS\VITAMINS [Concomitant]
     Active Substance: MINERALS\VITAMINS
     Indication: Supplementation therapy
  8. CLONIDINE [Concomitant]
     Active Substance: CLONIDINE
     Indication: Hypertension
  9. DEXILANT [Concomitant]
     Active Substance: DEXLANSOPRAZOLE
     Indication: Gastritis
  10. OMEGA 3 [Concomitant]
     Active Substance: CAPSAICIN
     Indication: Supplementation therapy
  11. VAGIFEM [Concomitant]
     Active Substance: ESTRADIOL
     Indication: Supplementation therapy
  12. FAMVIR [Concomitant]
     Active Substance: FAMCICLOVIR
     Indication: Herpes virus infection
  13. AVAPRO [Concomitant]
     Active Substance: IRBESARTAN
     Indication: Hypertension
  14. MAGNESIUM [Concomitant]
     Active Substance: MAGNESIUM
     Indication: Supplementation therapy
  15. PROVIGIL [Concomitant]
     Active Substance: MODAFINIL
     Indication: Fatigue
  16. MIRALAX [Concomitant]
     Active Substance: POLYETHYLENE GLYCOL 3350
     Indication: Constipation
  17. VITAMIN D [Concomitant]
     Active Substance: VITAMIN D NOS
     Indication: Supplementation therapy
  18. VITAMIN D [Concomitant]
     Active Substance: VITAMIN D NOS
     Indication: Osteoporosis
  19. IRON [Concomitant]
     Active Substance: IRON
     Indication: Iron deficiency
  20. FAMOTIDINE [Concomitant]
     Active Substance: FAMOTIDINE
     Indication: Gastritis

REACTIONS (2)
  - Eyelid vascular disorder [Not Recovered/Not Resolved]
  - Incorrect dose administered [Unknown]

NARRATIVE: CASE EVENT DATE: 20220501
